FAERS Safety Report 17149203 (Version 3)
Quarter: 2020Q3

REPORT INFORMATION
  Report Type: Spontaneous
  Country: US (occurrence: US)
  Receive Date: 20191213
  Receipt Date: 20200707
  Transmission Date: 20201102
  Serious: Yes (Hospitalization, Other)
  Sender: FDA-Public Use
  Company Number: US-ASTRAZENECA-2019SF76305

PATIENT
  Age: 19389 Day
  Sex: Female
  Weight: 78.5 kg

DRUGS (25)
  1. FASENRA [Suspect]
     Active Substance: BENRALIZUMAB
     Indication: ASPIRIN-EXACERBATED RESPIRATORY DISEASE
     Dosage: THEREAFTER EVERY TWO MONTHS
     Route: 058
  2. FASENRA [Suspect]
     Active Substance: BENRALIZUMAB
     Indication: ASPIRIN-EXACERBATED RESPIRATORY DISEASE
     Route: 058
     Dates: start: 20190918
  3. RAMIPRIL. [Concomitant]
     Active Substance: RAMIPRIL
     Indication: HYPERTENSION
     Dosage: 10.0MG UNKNOWN
  4. LASIX [Concomitant]
     Active Substance: FUROSEMIDE
     Indication: FLUID RETENTION
     Dosage: AS REQUIRED
     Route: 048
  5. AUGMENTIN [Concomitant]
     Active Substance: AMOXICILLIN\CLAVULANATE POTASSIUM
     Indication: SINUSITIS
     Dosage: EVERY 12 HOURS
     Route: 048
  6. FASENRA [Suspect]
     Active Substance: BENRALIZUMAB
     Indication: ASPIRIN-EXACERBATED RESPIRATORY DISEASE
     Dosage: FIRST 3 DOSES ADMINISTERED EVERY ONE MONTH
     Route: 058
  7. ZYRTEC [Concomitant]
     Active Substance: CETIRIZINE HYDROCHLORIDE
     Indication: HYPERSENSITIVITY
     Route: 048
  8. QNASL [Concomitant]
     Active Substance: BECLOMETHASONE DIPROPIONATE
     Route: 045
  9. PLAVIX [Concomitant]
     Active Substance: CLOPIDOGREL BISULFATE
     Route: 048
  10. ALPHA LIPOIC ACID [Concomitant]
     Active Substance: .ALPHA.-LIPOIC ACID
     Indication: DIABETIC NEUROPATHY
     Route: 048
  11. FASENRA [Suspect]
     Active Substance: BENRALIZUMAB
     Indication: POLYP
     Dosage: FIRST 3 DOSES ADMINISTERED EVERY ONE MONTH
     Route: 058
  12. FASENRA [Suspect]
     Active Substance: BENRALIZUMAB
     Indication: POLYP
     Dosage: THEREAFTER EVERY TWO MONTHS
     Route: 058
  13. ATORVASTATIN [Concomitant]
     Active Substance: ATORVASTATIN
  14. ADVAIR HFA [Concomitant]
     Active Substance: FLUTICASONE PROPIONATE\SALMETEROL XINAFOATE
     Indication: ASPIRIN-EXACERBATED RESPIRATORY DISEASE
     Dosage: DOSE 500/50
     Route: 055
  15. MULTIVITAMIN [Concomitant]
     Active Substance: VITAMINS
  16. FASENRA [Suspect]
     Active Substance: BENRALIZUMAB
     Indication: POLYP
     Route: 058
     Dates: start: 20190918
  17. PREDNISONE. [Concomitant]
     Active Substance: PREDNISONE
     Route: 048
  18. NOVOLOG [Concomitant]
     Active Substance: INSULIN ASPART
     Indication: DIABETES MELLITUS
     Route: 062
  19. ASPIRIN. [Concomitant]
     Active Substance: ASPIRIN
     Indication: IMMUNE TOLERANCE INDUCTION
     Dosage: 325.0MG UNKNOWN
     Route: 048
  20. DUPIXENT [Concomitant]
     Active Substance: DUPILUMAB
     Indication: ASPIRIN-EXACERBATED RESPIRATORY DISEASE
     Route: 058
  21. SPIRIVA [Concomitant]
     Active Substance: TIOTROPIUM BROMIDE MONOHYDRATE
     Indication: ASPIRIN-EXACERBATED RESPIRATORY DISEASE
     Route: 055
  22. LEVOTHYROXINE. [Concomitant]
     Active Substance: LEVOTHYROXINE
     Indication: THYROID DISORDER
     Dosage: 88.0UG UNKNOWN
     Route: 048
  23. ATROVENT [Concomitant]
     Active Substance: IPRATROPIUM BROMIDE
     Route: 055
  24. SINGULAIR [Concomitant]
     Active Substance: MONTELUKAST SODIUM
     Indication: HYPERSENSITIVITY
     Route: 048
  25. COENZYME Q10 [Concomitant]
     Active Substance: DIETARY SUPPLEMENT\UBIDECARENONE
     Indication: MYALGIA
     Route: 048

REACTIONS (11)
  - Cerebrovascular accident [Unknown]
  - Retinopathy hypertensive [Unknown]
  - Sinusitis [Not Recovered/Not Resolved]
  - Hyposmia [Unknown]
  - Therapeutic product effect delayed [Recovered/Resolved]
  - Carotid artery occlusion [Unknown]
  - Cough [Unknown]
  - Drug ineffective [Unknown]
  - Weight fluctuation [Unknown]
  - Blood pressure systolic increased [Unknown]
  - Product dispensing error [Unknown]

NARRATIVE: CASE EVENT DATE: 201909
